FAERS Safety Report 5441194-9 (Version None)
Quarter: 2007Q3

REPORT INFORMATION
  Report Type: 
  Country: None (occurrence: None)
  Receive Date: 20070901
  Receipt Date: 20070820
  Transmission Date: 20080115
  Serious: Yes (Other)
  Sender: FDA-Public Use
  Company Number: US-PFIZER INC-2007069925

PATIENT
  Sex: Female
  Weight: 74.545 kg

DRUGS (2)
  1. LYRICA [Suspect]
     Indication: PAIN
     Dates: start: 20050101, end: 20050101
  2. LYRICA [Suspect]
     Indication: FIBROMYALGIA

REACTIONS (4)
  - AMNESIA [None]
  - DYSARTHRIA [None]
  - GASTRITIS [None]
  - HAEMATEMESIS [None]
